FAERS Safety Report 8875448 (Version 2)
Quarter: 2013Q1

REPORT INFORMATION
  Report Type: Report from Study
  Country: CA (occurrence: CA)
  Receive Date: 20121023
  Receipt Date: 20130315
  Transmission Date: 20140127
  Serious: Yes (Hospitalization, Other)
  Sender: FDA-Public Use
  Company Number: CA-ROCHE-1065351

PATIENT
  Age: 28 None
  Sex: Female
  Weight: 59.02 kg

DRUGS (3)
  1. BEVACIZUMAB [Suspect]
     Indication: OVARIAN CANCER
     Route: 042
     Dates: start: 20111230, end: 20121005
  2. NEXIUM [Concomitant]
     Route: 065
  3. DOMPERIDONE [Concomitant]
     Route: 065

REACTIONS (9)
  - Small intestinal obstruction [Recovering/Resolving]
  - Abdominal pain [Recovered/Resolved]
  - Vomiting [Recovered/Resolved]
  - Urinary tract infection [Not Recovered/Not Resolved]
  - Body temperature increased [Recovered/Resolved]
  - Hydronephrosis [Unknown]
  - Abdominal abscess [Unknown]
  - Pyrexia [Unknown]
  - Fistula [Unknown]
